FAERS Safety Report 25505167 (Version 1)
Quarter: 2025Q3

REPORT INFORMATION
  Report Type: Report from Study
  Country: US (occurrence: US)
  Receive Date: 20250702
  Receipt Date: 20250702
  Transmission Date: 20251021
  Serious: Yes (Hospitalization)
  Sender: TAIHO ONCOLOGY INC
  Company Number: US-TAIHOP-2025-002894

PATIENT
  Age: 66 Year
  Sex: Female
  Weight: 45.2 kg

DRUGS (1)
  1. LONSURF [Suspect]
     Active Substance: TIPIRACIL HYDROCHLORIDE\TRIFLURIDINE
     Indication: Appendix cancer
     Dosage: CYCLE AND FORM STRENGTH UNKNOWN
     Route: 048
     Dates: start: 20220905

REACTIONS (2)
  - Impaired healing [Unknown]
  - Product use issue [Unknown]
